FAERS Safety Report 22138413 (Version 1)
Quarter: 2023Q1

REPORT INFORMATION
  Report Type: Spontaneous
  Country: SE (occurrence: SE)
  Receive Date: 20230326
  Receipt Date: 20230326
  Transmission Date: 20230418
  Serious: Yes (Other)
  Sender: FDA-Public Use
  Company Number: None

PATIENT
  Age: 64 Year
  Sex: Female
  Weight: 62 kg

DRUGS (10)
  1. NEOTIGASON [Suspect]
     Active Substance: ACITRETIN
     Indication: Skin texture abnormal
     Dosage: 25 MILLIGRAM DAILY;
     Route: 065
     Dates: start: 20220306
  2. NEOTIGASON [Suspect]
     Active Substance: ACITRETIN
     Indication: Skin fissures
  3. NEOTIGASON [Suspect]
     Active Substance: ACITRETIN
     Indication: Skin exfoliation
  4. ATORVASTATIN [Concomitant]
     Active Substance: ATORVASTATIN
     Indication: Product used for unknown indication
     Dosage: 1 DOSAGE FORMS DAILY;
     Route: 065
     Dates: start: 20220420
  5. FELODIPIN ACTAVIS [Concomitant]
     Indication: Product used for unknown indication
     Dosage: 10 MILLIGRAM DAILY;
     Route: 065
     Dates: start: 20050101
  6. METFORMIN EQL [Concomitant]
     Indication: Product used for unknown indication
     Dosage: 2000 MILLIGRAM DAILY;
     Route: 065
     Dates: start: 20171101
  7. MINIDERM [Concomitant]
     Indication: Product used for unknown indication
     Dosage: 20 PERCENT DAILY;
     Route: 065
     Dates: start: 20220419, end: 20220812
  8. METOPROLOL [Concomitant]
     Active Substance: METOPROLOL
     Indication: Product used for unknown indication
     Dosage: 50 MILLIGRAM DAILY;
     Route: 065
     Dates: start: 2004
  9. BETAMETHASONE DIPROPIONATE [Concomitant]
     Active Substance: BETAMETHASONE DIPROPIONATE
     Indication: Product used for unknown indication
     Dosage: 2 DOSAGE FORMS DAILY; APPLY 2 TIMES A DAY, FORM STRENGTH : 0.5 MG/G+30 MG/G
     Route: 065
     Dates: start: 20220317, end: 20220701
  10. HYDROCHLOROTHIAZIDE\LOSARTAN POTASSIUM [Concomitant]
     Active Substance: HYDROCHLOROTHIAZIDE\LOSARTAN POTASSIUM
     Indication: Product used for unknown indication
     Dosage: 1 DOSAGE FORMS DAILY;  FORM STRENGTH : 100 MG/12.5 MG
     Route: 065
     Dates: start: 20050101

REACTIONS (4)
  - Ulcer haemorrhage [Not Recovered/Not Resolved]
  - Pain in extremity [Not Recovered/Not Resolved]
  - Purulent discharge [Not Recovered/Not Resolved]
  - Furuncle [Not Recovered/Not Resolved]

NARRATIVE: CASE EVENT DATE: 20220404
